FAERS Safety Report 21095927 (Version 1)
Quarter: 2022Q3

REPORT INFORMATION
  Report Type: Spontaneous
  Country: US (occurrence: US)
  Receive Date: 20220718
  Receipt Date: 20220718
  Transmission Date: 20221027
  Serious: No
  Sender: FDA-Public Use
  Company Number: US-BRISTOL-MYERS SQUIBB COMPANY-2022-073543

PATIENT
  Age: 60 Year
  Sex: Female
  Weight: 86.64 kg

DRUGS (6)
  1. ORENCIA [Suspect]
     Active Substance: ABATACEPT
     Indication: Rheumatoid arthritis
     Route: 042
     Dates: start: 202203
  2. PREDNISONE [Concomitant]
     Active Substance: PREDNISONE
     Route: 065
  3. LITHIUM [Concomitant]
     Active Substance: LITHIUM
     Route: 065
  4. INSULIN NOS [Concomitant]
     Active Substance: INSULIN NOS
     Route: 065
  5. LANTUS [Concomitant]
     Active Substance: INSULIN GLARGINE
     Route: 065
  6. NOVOLOG [Concomitant]
     Active Substance: INSULIN ASPART
     Route: 065

REACTIONS (2)
  - Vertigo [Unknown]
  - Asthenia [Unknown]

NARRATIVE: CASE EVENT DATE: 20220301
